FAERS Safety Report 23213002 (Version 1)
Quarter: 2023Q4

REPORT INFORMATION
  Report Type: Spontaneous
  Country: US (occurrence: None)
  Receive Date: 20231121
  Receipt Date: 20231121
  Transmission Date: 20240110
  Serious: Yes (Other)
  Sender: FDA-Public Use
  Company Number: None

PATIENT
  Age: 61 Year
  Sex: Female
  Weight: 76 kg

DRUGS (1)
  1. VANCOMYCIN [Suspect]
     Active Substance: VANCOMYCIN
     Indication: Bacteraemia
     Dosage: OTHER FREQUENCY : EVERY TREATMENT;?
     Route: 041
     Dates: start: 20231117, end: 20231117

REACTIONS (3)
  - Flushing [None]
  - Dyspnoea [None]
  - Drug hypersensitivity [None]

NARRATIVE: CASE EVENT DATE: 20231117
